FAERS Safety Report 9858275 (Version 2)
Quarter: 2014Q1

REPORT INFORMATION
  Report Type: Spontaneous
  Country: US (occurrence: US)
  Receive Date: 20140131
  Receipt Date: 20140217
  Transmission Date: 20141002
  Serious: No
  Sender: FDA-Public Use
  Company Number: US-PFIZER INC-2014026595

PATIENT
  Age: 43 Year
  Sex: Male
  Weight: 86.17 kg

DRUGS (1)
  1. ADVIL [Suspect]
     Dosage: 200 MG, UNK
     Route: 048
     Dates: start: 201401, end: 201401

REACTIONS (4)
  - Dyspepsia [Unknown]
  - Eructation [Unknown]
  - Gastrooesophageal reflux disease [Unknown]
  - Product coating issue [Unknown]
